FAERS Safety Report 14340541 (Version 2)
Quarter: 2018Q1

REPORT INFORMATION
  Report Type: Spontaneous
  Country: KR (occurrence: KR)
  Receive Date: 20180101
  Receipt Date: 20180221
  Transmission Date: 20180509
  Serious: Yes (Death, Life-Threatening, Hospitalization, Disabling, Other)
  Sender: FDA-Public Use
  Company Number: PHHY2017KR194623

PATIENT
  Age: 75 Year
  Sex: Male
  Weight: 71 kg

DRUGS (11)
  1. EVEROLIMUS. [Suspect]
     Active Substance: EVEROLIMUS
     Dosage: 5 MG, QOD (5 MG, 1 IN 2 D)
     Route: 048
     Dates: start: 20171122, end: 20171211
  2. LENVATINIB [Suspect]
     Active Substance: LENVATINIB
     Dosage: 8 MG, QD
     Route: 048
     Dates: start: 20171122, end: 20171211
  3. STOGAR [Concomitant]
     Active Substance: LAFUTIDINE
     Indication: PRODUCT USED FOR UNKNOWN INDICATION
     Dosage: UNK
     Route: 065
  4. EVEROLIMUS. [Suspect]
     Active Substance: EVEROLIMUS
     Indication: RENAL CELL CARCINOMA
     Dosage: 5 MG, QD
     Route: 048
     Dates: start: 20170803, end: 20171015
  5. HARNAL [Concomitant]
     Active Substance: TAMSULOSIN HYDROCHLORIDE
     Indication: PRODUCT USED FOR UNKNOWN INDICATION
     Route: 065
  6. ACYCLOVIR. [Concomitant]
     Active Substance: ACYCLOVIR
     Indication: PRODUCT USED FOR UNKNOWN INDICATION
     Route: 065
  7. DUONASE [Concomitant]
     Indication: PRODUCT USED FOR UNKNOWN INDICATION
     Route: 065
  8. LENVATINIB [Suspect]
     Active Substance: LENVATINIB
     Indication: RENAL CELL CARCINOMA
     Dosage: 18 MG, QD
     Route: 048
     Dates: start: 20170803, end: 20170905
  9. LENVATINIB [Suspect]
     Active Substance: LENVATINIB
     Dosage: 14 MG, QD
     Route: 048
     Dates: start: 20170920, end: 20171015
  10. DERMOVATE [Concomitant]
     Active Substance: CLOBETASOL
     Indication: PRODUCT USED FOR UNKNOWN INDICATION
     Route: 065
  11. HYCET [Concomitant]
     Active Substance: ACETAMINOPHEN\HYDROCODONE BITARTRATE
     Indication: PRODUCT USED FOR UNKNOWN INDICATION
     Route: 065

REACTIONS (21)
  - Multiple organ dysfunction syndrome [Fatal]
  - Osteoporotic fracture [Unknown]
  - Pain [Unknown]
  - Delirium [Not Recovered/Not Resolved]
  - Spinal compression fracture [Recovered/Resolved]
  - Bronchial wall thickening [Unknown]
  - Pulmonary mass [Unknown]
  - Atelectasis [Unknown]
  - Pneumonia aspiration [Fatal]
  - Secretion discharge [Unknown]
  - Renal cyst [Unknown]
  - Vertebral foraminal stenosis [Unknown]
  - Intervertebral disc protrusion [Unknown]
  - Lung consolidation [Unknown]
  - Dizziness [Recovered/Resolved]
  - Back pain [Recovered/Resolved]
  - Cancer pain [Unknown]
  - Fall [Unknown]
  - Intervertebral disc degeneration [Unknown]
  - Cholelithiasis [Unknown]
  - Asthenia [Not Recovered/Not Resolved]

NARRATIVE: CASE EVENT DATE: 20170810
